FAERS Safety Report 9355704 (Version 1)
Quarter: 2013Q2

REPORT INFORMATION
  Report Type: Spontaneous
  Country: US (occurrence: US)
  Receive Date: 20130619
  Receipt Date: 20130619
  Transmission Date: 20140414
  Serious: No
  Sender: FDA-Public Use
  Company Number: US-JNJFOC-20130602276

PATIENT
  Sex: Female
  Weight: 131.54 kg

DRUGS (4)
  1. DURAGESIC [Suspect]
     Indication: ARTHRALGIA
     Route: 062
     Dates: start: 2013
  2. DURAGESIC [Suspect]
     Indication: BACK PAIN
     Route: 062
     Dates: start: 2013
  3. EFFEXOR [Concomitant]
     Dates: start: 2012
  4. WELLBUTRIN [Concomitant]
     Dates: start: 2012

REACTIONS (7)
  - Acne [Not Recovered/Not Resolved]
  - Acne [Not Recovered/Not Resolved]
  - Fatigue [Not Recovered/Not Resolved]
  - Blister [Recovered/Resolved]
  - Wrong technique in drug usage process [Not Recovered/Not Resolved]
  - Hyperhidrosis [Not Recovered/Not Resolved]
  - Wrong technique in drug usage process [Not Recovered/Not Resolved]
